FAERS Safety Report 19453993 (Version 4)
Quarter: 2021Q4

REPORT INFORMATION
  Report Type: Spontaneous
  Country: US (occurrence: US)
  Receive Date: 20210623
  Receipt Date: 20211007
  Transmission Date: 20220303
  Serious: No
  Sender: FDA-Public Use
  Company Number: US-ALNYLAM PHARMACEUTICALS, INC.-ALN-2021-001482

PATIENT

DRUGS (3)
  1. ONPATTRO [Suspect]
     Active Substance: PATISIRAN SODIUM
     Indication: Product used for unknown indication
     Dosage: 30 MILLIGRAM, Q3W
     Route: 042
     Dates: start: 20200219, end: 20210513
  2. Delsum [Concomitant]
     Indication: Product used for unknown indication
     Route: 065
  3. COVID-19 vaccine [Concomitant]
     Indication: Product used for unknown indication
     Dosage: UNK
     Route: 065
     Dates: start: 20210915

REACTIONS (11)
  - Bronchitis [Unknown]
  - Lung disorder [Unknown]
  - Intentional dose omission [Not Recovered/Not Resolved]
  - Hypoaesthesia [Unknown]
  - Paraesthesia [Unknown]
  - Crohn^s disease [Not Recovered/Not Resolved]
  - Neck mass [Unknown]
  - COVID-19 immunisation [Unknown]
  - Therapy cessation [Unknown]
  - Muscle spasms [Unknown]
  - Dyspnoea [Not Recovered/Not Resolved]

NARRATIVE: CASE EVENT DATE: 20210501
